FAERS Safety Report 8955106 (Version 1)
Quarter: 2012Q4

REPORT INFORMATION
  Report Type: Report from Study
  Country: BR (occurrence: BR)
  Receive Date: 20121207
  Receipt Date: 20121207
  Transmission Date: 20130627
  Serious: Yes (Other)
  Sender: FDA-Public Use
  Company Number: BR-ABBOTT-12P-020-1003636-00

PATIENT
  Age: 62 Year
  Sex: Female
  Weight: 60 kg

DRUGS (4)
  1. HUMIRA [Suspect]
     Indication: RHEUMATOID ARTHRITIS
     Route: 048
     Dates: start: 201208, end: 20121008
  2. CALCIUM [Concomitant]
     Indication: MINERAL SUPPLEMENTATION
     Dosage: 1 or 2 tablets daily
     Route: 048
     Dates: start: 2008
  3. ENDROSTAN [Concomitant]
     Indication: OSTEOPOROSIS
     Route: 048
     Dates: start: 2007
  4. ATENOLOL [Concomitant]
     Indication: BLOOD PRESSURE
     Dosage: Daily as needed
     Route: 048

REACTIONS (14)
  - Deafness [Recovered/Resolved]
  - Poor peripheral circulation [Not Recovered/Not Resolved]
  - Pain [Recovering/Resolving]
  - Alopecia [Not Recovered/Not Resolved]
  - Dyspnoea [Unknown]
  - Abdominal pain upper [Recovered/Resolved]
  - Dyspnoea [Recovered/Resolved]
  - Inflammation [Recovered/Resolved]
  - Alopecia [Not Recovered/Not Resolved]
  - Tinnitus [Recovered/Resolved]
  - Tachycardia [Recovered/Resolved]
  - Blood pressure increased [Recovered/Resolved]
  - Gastrooesophageal reflux disease [Recovered/Resolved]
  - Urine output decreased [Recovered/Resolved]
